FAERS Safety Report 20695721 (Version 1)
Quarter: 2022Q2

REPORT INFORMATION
  Report Type: Spontaneous
  Country: CH (occurrence: CH)
  Receive Date: 20220411
  Receipt Date: 20220411
  Transmission Date: 20220721
  Serious: Yes (Other)
  Sender: FDA-Public Use
  Company Number: None

PATIENT
  Age: 49 Year
  Sex: Male
  Weight: 102 kg

DRUGS (4)
  1. SOTROVIMAB [Suspect]
     Active Substance: SOTROVIMAB
     Indication: COVID-19 treatment
     Dosage: 500 MG (1 DOSE  XEVUDY (SOTROVIMAB)- PAS DE CODE ATC EXISTANT)
     Route: 041
     Dates: start: 20220210, end: 20220210
  2. HERBALS\HOPS\VALERIAN [Suspect]
     Active Substance: HERBALS\HOPS\VALERIAN
     Indication: Insomnia
     Dosage: 500 MG, QD
     Route: 048
     Dates: start: 20220210
  3. NORFLOXACIN [Concomitant]
     Active Substance: NORFLOXACIN
     Indication: Spontaneous bacterial peritonitis
     Dosage: 400 MG, QD
     Route: 048
     Dates: start: 20220217, end: 20220222
  4. ENOXAPARIN SODIUM [Concomitant]
     Active Substance: ENOXAPARIN SODIUM
     Indication: Thrombosis prophylaxis
     Dosage: 40 MG, QD
     Route: 058
     Dates: start: 20220217, end: 20220222

REACTIONS (1)
  - Liver function test abnormal [Recovering/Resolving]

NARRATIVE: CASE EVENT DATE: 20220217
